FAERS Safety Report 6728462-5 (Version None)
Quarter: 2010Q2

REPORT INFORMATION
  Report Type: 
  Country: None (occurrence: None)
  Receive Date: 20100517
  Receipt Date: 20100503
  Transmission Date: 20101027
  Serious: Yes (Other)
  Sender: FDA-Public Use
  Company Number: US-AMGEN-QUU389052

PATIENT
  Sex: Female
  Weight: 66.3 kg

DRUGS (7)
  1. NPLATE [Suspect]
     Indication: IDIOPATHIC THROMBOCYTOPENIC PURPURA
     Dates: start: 20090301
  2. CITRACAL [Concomitant]
     Route: 048
     Dates: start: 20100107
  3. MULTI-VITAMINS [Concomitant]
     Route: 048
     Dates: start: 20070925
  4. RITUXAN [Concomitant]
     Dates: end: 20091124
  5. CYCLOSPORINE [Concomitant]
  6. PREDNISONE [Concomitant]
  7. VINCRISTINE [Concomitant]
     Dates: end: 20090330

REACTIONS (8)
  - BIOPSY BONE MARROW ABNORMAL [None]
  - DIZZINESS [None]
  - HAEMATURIA [None]
  - HERPES SIMPLEX [None]
  - HYDRONEPHROSIS [None]
  - LEUKOCYTOSIS [None]
  - PLATELET COUNT DECREASED [None]
  - THERAPEUTIC RESPONSE DECREASED [None]
